FAERS Safety Report 5047392-0 (Version None)
Quarter: 2006Q2

REPORT INFORMATION
  Report Type: 
  Country: None (occurrence: None)
  Receive Date: 20060601
  Receipt Date: 20060325
  Transmission Date: 20061013
  Serious: No
  Sender: FDA-Public Use
  Company Number: 2006PV010905

PATIENT
  Age: 47 Year
  Sex: Male
  Weight: 117.9352 kg

DRUGS (5)
  1. BYETTA [Suspect]
     Indication: DIABETES MELLITUS NON-INSULIN-DEPENDENT
     Dosage: SEE IMAGE
     Route: 058
     Dates: start: 20060101, end: 20060319
  2. BYETTA [Suspect]
     Indication: DIABETES MELLITUS NON-INSULIN-DEPENDENT
     Dosage: SEE IMAGE
     Route: 058
     Dates: start: 20060320
  3. METFORMIN HCL [Concomitant]
  4. AVANDIA [Concomitant]
  5. ACTOS [Concomitant]

REACTIONS (6)
  - ABDOMINAL PAIN UPPER [None]
  - ERUCTATION [None]
  - FLATULENCE [None]
  - LIBIDO INCREASED [None]
  - MIGRAINE [None]
  - WEIGHT DECREASED [None]
